FAERS Safety Report 10178712 (Version 8)
Quarter: 2015Q4

REPORT INFORMATION
  Report Type: Report from Study
  Country: US (occurrence: US)
  Receive Date: 20140519
  Receipt Date: 20151106
  Transmission Date: 20160304
  Serious: Yes (Hospitalization, Other)
  Sender: FDA-Public Use
  Company Number: US-BIOGENIDEC-2014BI046128

PATIENT
  Age: 46 Year
  Sex: Female

DRUGS (1)
  1. TYSABRI [Suspect]
     Active Substance: NATALIZUMAB
     Indication: MULTIPLE SCLEROSIS
     Route: 042
     Dates: start: 20081211, end: 20140411

REACTIONS (11)
  - Glomerulonephritis [Not Recovered/Not Resolved]
  - Cryoglobulinaemia [Not Recovered/Not Resolved]
  - Adverse event [Unknown]
  - Renal failure [Not Recovered/Not Resolved]
  - Haematoma [Not Recovered/Not Resolved]
  - Opportunistic infection [Unknown]
  - Monoclonal gammopathy [Unknown]
  - Quality of life decreased [Not Recovered/Not Resolved]
  - Post procedural haemorrhage [Recovered/Resolved]
  - Malaise [Unknown]
  - Chronic kidney disease [Not Recovered/Not Resolved]

NARRATIVE: CASE EVENT DATE: 2014
